FAERS Safety Report 24919883 (Version 1)
Quarter: 2025Q1

REPORT INFORMATION
  Report Type: Report from Study
  Country: US (occurrence: US)
  Receive Date: 20250204
  Receipt Date: 20250204
  Transmission Date: 20250409
  Serious: No
  Sender: EXELIXIS
  Company Number: US-EXELIXIS-CABO-24072449

PATIENT
  Age: 49 Year
  Sex: Male

DRUGS (7)
  1. CABOMETYX [Suspect]
     Active Substance: CABOZANTINIB S-MALATE
     Indication: Paraganglion neoplasm malignant
     Dosage: 40 MG, QD
     Dates: start: 20231215
  2. LOSARTAN [Concomitant]
     Active Substance: LOSARTAN
  3. PRAVASTATIN [Concomitant]
     Active Substance: PRAVASTATIN
  4. CABERGOLINE [Concomitant]
     Active Substance: CABERGOLINE
  5. TESTOSTERONE CYPIONATE [Concomitant]
     Active Substance: TESTOSTERONE CYPIONATE
  6. VITAMIN D [Concomitant]
     Active Substance: VITAMIN D NOS
  7. CLARITIN [Concomitant]
     Active Substance: LORATADINE

REACTIONS (11)
  - Hepatic enzyme increased [Not Recovered/Not Resolved]
  - Thyroid hormones increased [Not Recovered/Not Resolved]
  - Decreased appetite [Not Recovered/Not Resolved]
  - Weight decreased [Recovered/Resolved]
  - Nasopharyngitis [Recovering/Resolving]
  - Throat irritation [Recovering/Resolving]
  - Oropharyngeal pain [Not Recovered/Not Resolved]
  - Pharyngeal erythema [Recovering/Resolving]
  - Oral pain [Recovering/Resolving]
  - Fatigue [Recovering/Resolving]
  - Off label use [Unknown]

NARRATIVE: CASE EVENT DATE: 20240201
